FAERS Safety Report 25058855 (Version 1)
Quarter: 2025Q1

REPORT INFORMATION
  Report Type: Spontaneous
  Country: US (occurrence: None)
  Receive Date: 20250307
  Receipt Date: 20250307
  Transmission Date: 20250409
  Serious: Yes (Other)
  Sender: FDA-CTU
  Company Number: None

PATIENT
  Age: 67 Year
  Sex: Male

DRUGS (1)
  1. PEMIVIBART [Suspect]
     Active Substance: PEMIVIBART
     Indication: COVID-19 prophylaxis
     Route: 042

REACTIONS (3)
  - Vomiting [None]
  - Pruritus [None]
  - Nausea [None]

NARRATIVE: CASE EVENT DATE: 20241106
